FAERS Safety Report 7847649-1 (Version None)
Quarter: 2011Q4

REPORT INFORMATION
  Report Type: 
  Country: None (occurrence: None)
  Receive Date: 20111025
  Receipt Date: 20111014
  Transmission Date: 20120403
  Serious: Yes (Hospitalization, Other)
  Sender: FDA-Public Use
  Company Number: US-BAXTER-2011BH031401

PATIENT
  Sex: Male

DRUGS (1)
  1. DIANEAL PD-2 W/ DEXTROSE 1.5% [Suspect]
     Indication: PERITONEAL DIALYSIS
     Route: 033
     Dates: end: 20110101

REACTIONS (13)
  - CHOLELITHIASIS [None]
  - BACK PAIN [None]
  - SEPSIS [None]
  - DIEULAFOY'S VASCULAR MALFORMATION [None]
  - HEPATIC CIRRHOSIS [None]
  - CLOSTRIDIAL INFECTION [None]
  - WOUND INFECTION [None]
  - MYOCARDIAL INFARCTION [None]
  - DUODENAL ULCER [None]
  - DUODENAL ULCER HAEMORRHAGE [None]
  - PULMONARY EMBOLISM [None]
  - CHOLECYSTITIS [None]
  - IMMOBILE [None]
